FAERS Safety Report 7089698-X (Version None)
Quarter: 2010Q4

REPORT INFORMATION
  Report Type: 
  Country: None (occurrence: None)
  Receive Date: 20101108
  Receipt Date: 20100205
  Transmission Date: 20110411
  Serious: No
  Sender: FDA-Public Use
  Company Number: US-ABBOTT-10P-163-0625036-00

PATIENT
  Age: 55 Year
  Sex: Male

DRUGS (4)
  1. TRICOR [Suspect]
     Indication: VASCULAR GRAFT
     Route: 048
     Dates: start: 20091201
  2. LIPITOR [Concomitant]
     Indication: PRODUCT USED FOR UNKNOWN INDICATION
  3. FISH OIL [Concomitant]
     Indication: PRODUCT USED FOR UNKNOWN INDICATION
  4. ASPIRIN [Concomitant]
     Indication: PRODUCT USED FOR UNKNOWN INDICATION
     Route: 048

REACTIONS (1)
  - LOW DENSITY LIPOPROTEIN INCREASED [None]
